FAERS Safety Report 5340216-3 (Version None)
Quarter: 2007Q2

REPORT INFORMATION
  Report Type: 
  Country: None (occurrence: None)
  Receive Date: 20070405
  Receipt Date: 20061207
  Transmission Date: 20071010
  Serious: No
  Sender: FDA-Public Use
  Company Number: US200612001153

PATIENT
  Age: 68 Year
  Sex: Female

DRUGS (12)
  1. CYMBALTA [Suspect]
     Indication: DEPRESSION
     Dosage: SEE IMAGE
     Dates: start: 20061101
  2. ESTROPIPATE [Concomitant]
  3. LEVOXYL [Concomitant]
  4. CARISOPRODOL (CARISOPRODOL) [Concomitant]
  5. ZESTRIL [Concomitant]
  6. PROTONIX [Concomitant]
  7. BUMEX [Concomitant]
  8. ASPIRIN [Concomitant]
  9. CRESTOR [Concomitant]
  10. CLONIDINE [Concomitant]
  11. HYDROCODONE (HYDROCODONE) [Concomitant]
  12. DOLOPHINE (METHADONE HYDROCHLORIDE) [Concomitant]

REACTIONS (1)
  - DEPRESSION [None]
